FAERS Safety Report 10670552 (Version 1)
Quarter: 2014Q4

REPORT INFORMATION
  Report Type: Spontaneous
  Country: US (occurrence: None)
  Receive Date: 20141208
  Receipt Date: 20141208
  Transmission Date: 20150529
  Serious: No
  Sender: FDA-Public Use
  Company Number: 2014TUS008780

PATIENT
  Age: 62 Year
  Sex: Male
  Weight: 74.8 kg

DRUGS (2)
  1. BRINTELLIX [Suspect]
     Active Substance: VORTIOXETINE HYDROBROMIDE
     Indication: DEPRESSION
     Dosage: 10 MG, 1 TAB QD, ORAL
     Route: 048
     Dates: start: 201407
  2. SYNTHROID [Concomitant]
     Active Substance: LEVOTHYROXINE SODIUM

REACTIONS (2)
  - Choking sensation [None]
  - Drug ineffective [None]

NARRATIVE: CASE EVENT DATE: 2014
